FAERS Safety Report 6795764-6 (Version None)
Quarter: 2010Q2

REPORT INFORMATION
  Report Type: 
  Country: None (occurrence: None)
  Receive Date: 20100625
  Receipt Date: 20100616
  Transmission Date: 20101027
  Serious: Yes (Other)
  Sender: FDA-Public Use
  Company Number: CH-B.I. PHARMACEUTICALS,INC./RIDGEFIELD-2010-SI-00025SI

PATIENT
  Age: 55 Year
  Sex: Female

DRUGS (1)
  1. SIFROL [Suspect]
     Indication: RESTLESS LEGS SYNDROME
     Dosage: 0.18 MG
     Route: 048
     Dates: start: 20091001, end: 20100531

REACTIONS (3)
  - MICTURITION DISORDER [None]
  - URINARY RETENTION [None]
  - URINARY TRACT INFECTION [None]
